FAERS Safety Report 23245635 (Version 1)
Quarter: 2023Q4

REPORT INFORMATION
  Report Type: Spontaneous
  Country: FR (occurrence: FR)
  Receive Date: 20231130
  Receipt Date: 20231130
  Transmission Date: 20240110
  Serious: Yes (Hospitalization)
  Sender: FDA-Public Use
  Company Number: None

PATIENT
  Age: 70 Year
  Sex: Male
  Weight: 88.099 kg

DRUGS (6)
  1. ETOPOSIDE PHOSPHATE [Suspect]
     Active Substance: ETOPOSIDE PHOSPHATE
     Indication: Lung cancer metastatic
     Dosage: LYOPHILISATE FOR PARENTERAL USE
     Route: 042
     Dates: start: 20231011
  2. ETOPOSIDE PHOSPHATE [Suspect]
     Active Substance: ETOPOSIDE PHOSPHATE
     Indication: Lung cancer metastatic
     Dosage: C2D1
     Dates: start: 20231031
  3. CARBOPLATIN [Suspect]
     Active Substance: CARBOPLATIN
     Dosage: 530 MG DT
     Dates: start: 20231011
  4. CARBOPLATIN [Suspect]
     Active Substance: CARBOPLATIN
     Dosage: C2D1 TREATMENT
     Dates: start: 20231031
  5. DURVALUMAB [Suspect]
     Active Substance: DURVALUMAB
     Dates: start: 20231011
  6. DURVALUMAB [Suspect]
     Active Substance: DURVALUMAB
     Dosage: C2D1
     Dates: start: 20231031

REACTIONS (2)
  - Arteriospasm coronary [Recovered/Resolved]
  - Anaemia [Recovering/Resolving]

NARRATIVE: CASE EVENT DATE: 20231101
